FAERS Safety Report 8162438-9 (Version None)
Quarter: 2012Q1

REPORT INFORMATION
  Report Type: 
  Country: None (occurrence: None)
  Receive Date: 20120221
  Receipt Date: 20120209
  Transmission Date: 20120608
  Serious: Yes (Death)
  Sender: FDA-Public Use
  Company Number: 1000028296

PATIENT
  Age: 75 Year
  Sex: Female

DRUGS (1)
  1. VIIBRYD [Suspect]

REACTIONS (1)
  - COMPLETED SUICIDE [None]
